FAERS Safety Report 6413388-7 (Version None)
Quarter: 2009Q4

REPORT INFORMATION
  Report Type: 
  Country: None (occurrence: None)
  Receive Date: 20091026
  Receipt Date: 20091016
  Transmission Date: 20100525
  Serious: Yes (Death, Hospitalization)
  Sender: FDA-Public Use
  Company Number: FR-ROCHE-663783

PATIENT
  Sex: Male

DRUGS (3)
  1. CAPECITABINE [Suspect]
     Indication: METASTATIC GASTRIC CANCER
     Dosage: DOSAGE REGIMEN PER PROTOCOL
     Route: 048
     Dates: start: 20080707
  2. EPIRUBICIN [Suspect]
     Indication: METASTATIC GASTRIC CANCER
     Dosage: IN 45 CC OF NACL 0.9% IN 15 MIN
     Route: 042
     Dates: start: 20080707
  3. CISPLATIN [Suspect]
     Indication: METASTATIC GASTRIC CANCER
     Dosage: IN 45 CC OF NACL 0.9% IN ONE HOUR INFUSION
     Route: 042
     Dates: start: 20090707

REACTIONS (3)
  - GASTROINTESTINAL HAEMORRHAGE [None]
  - MALIGNANT NEOPLASM PROGRESSION [None]
  - METASTATIC GASTRIC CANCER [None]
